FAERS Safety Report 21525434 (Version 3)
Quarter: 2023Q1

REPORT INFORMATION
  Report Type: Report from Study
  Country: JP (occurrence: JP)
  Receive Date: 20221030
  Receipt Date: 20230124
  Transmission Date: 20230417
  Serious: Yes (Other)
  Sender: FDA-Public Use
  Company Number: JP-NOVARTISPH-NVSJ2022JP099809

PATIENT
  Age: 6 Year
  Sex: Male
  Weight: 22.9 kg

DRUGS (16)
  1. ILARIS [Suspect]
     Active Substance: CANAKINUMAB
     Indication: Still^s disease
     Dosage: 90 MG
     Route: 058
     Dates: start: 20210322
  2. ILARIS [Suspect]
     Active Substance: CANAKINUMAB
     Dosage: 90 MG
     Route: 058
     Dates: start: 20210420
  3. ILARIS [Suspect]
     Active Substance: CANAKINUMAB
     Dosage: 90 MG
     Route: 058
     Dates: start: 20210518
  4. ILARIS [Suspect]
     Active Substance: CANAKINUMAB
     Dosage: 90 MG
     Route: 058
     Dates: start: 20210616
  5. ILARIS [Suspect]
     Active Substance: CANAKINUMAB
     Dosage: 120 MG
     Route: 058
     Dates: start: 20210713
  6. ILARIS [Suspect]
     Active Substance: CANAKINUMAB
     Dosage: 120 MG
     Route: 058
     Dates: start: 20210810
  7. ILARIS [Suspect]
     Active Substance: CANAKINUMAB
     Dosage: 90 MG
     Route: 058
     Dates: start: 20210914
  8. ILARIS [Suspect]
     Active Substance: CANAKINUMAB
     Dosage: 90 MG
     Route: 058
     Dates: start: 20211025
  9. ILARIS [Suspect]
     Active Substance: CANAKINUMAB
     Dosage: 105 MG
     Route: 058
     Dates: start: 20211124
  10. ILARIS [Suspect]
     Active Substance: CANAKINUMAB
     Dosage: 105 MG
     Route: 058
     Dates: start: 20211221
  11. ILARIS [Suspect]
     Active Substance: CANAKINUMAB
     Dosage: 105 MG
     Route: 058
     Dates: start: 20220118
  12. ILARIS [Suspect]
     Active Substance: CANAKINUMAB
     Dosage: 105 MG
     Route: 058
     Dates: start: 20220215
  13. ILARIS [Suspect]
     Active Substance: CANAKINUMAB
     Dosage: 112.5 MG
     Route: 058
     Dates: start: 20220315
  14. COLCHICINE [Suspect]
     Active Substance: COLCHICINE
     Indication: Still^s disease
     Dosage: 0.4 MG
     Route: 048
     Dates: start: 20200519, end: 20210913
  15. PREDNISOLONE [Concomitant]
     Active Substance: PREDNISOLONE
     Indication: Still^s disease
     Dosage: 7 MG
     Route: 048
     Dates: start: 20210316
  16. SIROLIMUS [Concomitant]
     Active Substance: SIROLIMUS
     Indication: Still^s disease
     Dosage: 1 MG
     Route: 048
     Dates: start: 20210907

REACTIONS (1)
  - Hepatic function abnormal [Recovering/Resolving]

NARRATIVE: CASE EVENT DATE: 20210406
